FAERS Safety Report 19439175 (Version 2)
Quarter: 2021Q2

REPORT INFORMATION
  Report Type: Spontaneous
  Country: US (occurrence: US)
  Receive Date: 20210619
  Receipt Date: 20210630
  Transmission Date: 20210717
  Serious: No
  Sender: FDA-Public Use
  Company Number: US-UNITED THERAPEUTICS-UNT-2021-011368

PATIENT
  Age: 68 Year
  Sex: Female

DRUGS (2)
  1. REMODULIN [Suspect]
     Active Substance: TREPROSTINIL
     Indication: PULMONARY ARTERIAL HYPERTENSION
     Dosage: UNK, CONTINUING
     Route: 041
     Dates: start: 20190904
  2. REMODULIN [Suspect]
     Active Substance: TREPROSTINIL
     Dosage: 0.095 ?G/KG, CONTINUING
     Route: 041

REACTIONS (12)
  - Nausea [Unknown]
  - Heat illness [Unknown]
  - Blood potassium decreased [Unknown]
  - Malaise [Unknown]
  - Product administered by wrong person [Unknown]
  - Gait inability [Unknown]
  - Fatigue [Unknown]
  - Drug dispensed to wrong patient [Unknown]
  - Weight decreased [Unknown]
  - Retching [Unknown]
  - Vomiting [Unknown]
  - Decreased appetite [Unknown]

NARRATIVE: CASE EVENT DATE: 202106
